FAERS Safety Report 7319001-9 (Version None)
Quarter: 2011Q1

REPORT INFORMATION
  Report Type: 
  Country: None (occurrence: None)
  Receive Date: 20110223
  Receipt Date: 20110223
  Transmission Date: 20110831
  Serious: Yes (Other)
  Sender: FDA-Public Use
  Company Number: None

PATIENT
  Sex: Male
  Weight: 81.6475 kg

DRUGS (4)
  1. METOPROLOL SUCCINATE EXTENDED RELEASE [Suspect]
     Indication: ARRHYTHMIA SUPRAVENTRICULAR
     Dosage: 1 TABLET ONCE A DAY PO
     Route: 048
     Dates: start: 20110204, end: 20110220
  2. PROVIGIL [Concomitant]
  3. ALLOPURINOL [Concomitant]
  4. METFORMIN [Concomitant]

REACTIONS (3)
  - PRODUCT QUALITY ISSUE [None]
  - PRODUCT CONTAMINATION [None]
  - BLOOD PRESSURE INCREASED [None]
